FAERS Safety Report 7973614 (Version 2)
Quarter: 2016Q2

REPORT INFORMATION
  Report Type: Spontaneous
  Country: FR (occurrence: FR)
  Receive Date: 20110603
  Receipt Date: 20160406
  Transmission Date: 20160815
  Serious: Yes (Other)
  Sender: FDA-Public Use
  Company Number: FR-ROCHE-779725

PATIENT
  Age: 71 Year
  Sex: Female

DRUGS (4)
  1. TAMOXIFENE [Suspect]
     Active Substance: TAMOXIFEN
     Indication: BREAST CANCER
     Dosage: DRUG REPORTED AS TAMOXIFENE SANDOZ.
     Route: 065
     Dates: start: 20110107, end: 20111220
  2. TAXOL [Suspect]
     Active Substance: PACLITAXEL
     Indication: BREAST CANCER
     Dosage: DOSE: 100 MG/17ML,SOLUTION FOR INFUSION.
     Route: 065
     Dates: start: 201007, end: 20101222
  3. ZOMETA [Suspect]
     Active Substance: ZOLEDRONIC ACID
     Indication: BONE DISORDER
     Dosage: DOSE: 4 MG/5ML,SOLUTION FOR INFUSION.
     Route: 041
     Dates: start: 20100816, end: 20110415
  4. AVASTIN [Suspect]
     Active Substance: BEVACIZUMAB
     Indication: BREAST CANCER
     Dosage: DOSE: 25 MG/ML,SOLUTION FOR INFUSION.
     Route: 041
     Dates: start: 201007, end: 20110419

REACTIONS (2)
  - Periodontal destruction [Recovered/Resolved]
  - Noninfective gingivitis [Recovered/Resolved]

NARRATIVE: CASE EVENT DATE: 201104
